FAERS Safety Report 5935153-7 (Version None)
Quarter: 2008Q4

REPORT INFORMATION
  Report Type: 
  Country: None (occurrence: None)
  Receive Date: 20081030
  Receipt Date: 20081020
  Transmission Date: 20090506
  Serious: Yes (Hospitalization)
  Sender: FDA-Public Use
  Company Number: US-JNJFOC-20071004215

PATIENT
  Sex: Female

DRUGS (4)
  1. RISPERDAL [Suspect]
     Indication: DRUG USE FOR UNKNOWN INDICATION
     Dosage: SOLUTION = 1MG/ML DOSE GIVEN 2 TEASPOONS.
     Route: 048
  2. CEDAX [Concomitant]
  3. ALBUTEROL [Concomitant]
  4. BROMHIST PDX [Concomitant]

REACTIONS (4)
  - DEAFNESS [None]
  - EAR INFECTION [None]
  - MEDICATION ERROR [None]
  - NEUROLEPTIC MALIGNANT SYNDROME [None]
